FAERS Safety Report 9201702 (Version 1)
Quarter: 2013Q1

REPORT INFORMATION
  Report Type: Spontaneous
  Country: GB (occurrence: None)
  Receive Date: 20130327
  Receipt Date: 20130327
  Transmission Date: 20140127
  Serious: Yes (Hospitalization)
  Sender: FDA-Public Use
  Company Number: 2013-04994

PATIENT
  Age: 69 Year
  Sex: Male

DRUGS (3)
  1. VINORELBINE [Suspect]
     Route: 042
     Dates: start: 20090226, end: 20090409
  2. DALTEPARIN SODIUM (DALTEPARIN SODIUM) UNKNOWN [Suspect]
     Dates: start: 20090226
  3. CISPLATIN [Suspect]
     Dates: start: 20090226, end: 20090409

REACTIONS (11)
  - Hypercalcaemia [None]
  - Lethargy [None]
  - Musculoskeletal pain [None]
  - Nausea [None]
  - Cough [None]
  - General physical health deterioration [None]
  - Productive cough [None]
  - Haemoptysis [None]
  - Hypophagia [None]
  - Decreased appetite [None]
  - Blood calcium increased [None]
